FAERS Safety Report 7631710-0 (Version None)
Quarter: 2011Q3

REPORT INFORMATION
  Report Type: 
  Country: None (occurrence: None)
  Receive Date: 20110725
  Receipt Date: 20110712
  Transmission Date: 20111222
  Serious: Yes (Hospitalization)
  Sender: FDA-Public Use
  Company Number: US-ELI_LILLY_AND_COMPANY-US201103003331

PATIENT
  Sex: Female
  Weight: 52.608 kg

DRUGS (9)
  1. NORCO [Concomitant]
  2. CLONAZEPAM [Concomitant]
  3. FLEXERIL [Concomitant]
  4. FORTEO [Suspect]
     Dosage: 20 UG, QD
     Route: 058
     Dates: start: 20081219
  5. AMBIEN [Concomitant]
  6. POTASSIUM [Concomitant]
  7. PRENATAL VITAMINS                  /01549301/ [Concomitant]
  8. WELLBUTRIN [Concomitant]
  9. LEXAPRO [Concomitant]

REACTIONS (4)
  - INTERVERTEBRAL DISC DEGENERATION [None]
  - ROTATOR CUFF SYNDROME [None]
  - FOOT OPERATION [None]
  - SURGERY [None]
